FAERS Safety Report 6783364-3 (Version None)
Quarter: 2010Q2

REPORT INFORMATION
  Report Type: 
  Country: None (occurrence: None)
  Receive Date: 20100617
  Receipt Date: 20100601
  Transmission Date: 20101027
  Serious: Yes (Hospitalization, Other)
  Sender: FDA-Public Use
  Company Number: 2010SCPR001185

PATIENT
  Age: 76 Year
  Sex: Female

DRUGS (3)
  1. VERAPAMIL [Suspect]
     Indication: HYPERTENSION
     Dosage: 480 MG
  2. GLICLAZIDE (GLICLAZIDE) [Concomitant]
  3. FUROSEMIDE [Concomitant]

REACTIONS (17)
  - ATRIAL FIBRILLATION [None]
  - BLOOD GASES ABNORMAL [None]
  - BLOOD GLUCOSE ABNORMAL [None]
  - BLOOD MAGNESIUM INCREASED [None]
  - BLOOD PHOSPHORUS INCREASED [None]
  - BLOOD PRESSURE DECREASED [None]
  - CARDIOTOXICITY [None]
  - CIRCULATORY COLLAPSE [None]
  - DIZZINESS [None]
  - DRUG TOXICITY [None]
  - HYPERHIDROSIS [None]
  - HYPERMAGNESAEMIA [None]
  - LEFT VENTRICULAR HYPERTROPHY [None]
  - MYOCARDIAL ISCHAEMIA [None]
  - NODAL RHYTHM [None]
  - RENAL FAILURE [None]
  - SICK SINUS SYNDROME [None]
